FAERS Safety Report 16084447 (Version 1)
Quarter: 2019Q1

REPORT INFORMATION
  Report Type: Spontaneous
  Country: US (occurrence: US)
  Receive Date: 20190318
  Receipt Date: 20190318
  Transmission Date: 20190418
  Serious: No
  Sender: FDA-Public Use
  Company Number: US-AKRON, INC.-2064174

PATIENT
  Sex: Female

DRUGS (1)
  1. ZIOPTAN [Suspect]
     Active Substance: TAFLUPROST
     Route: 047

REACTIONS (7)
  - Eructation [None]
  - Nausea [None]
  - Dysgeusia [None]
  - Hypertension [None]
  - Headache [None]
  - Eye irritation [None]
  - Ocular hyperaemia [None]
